FAERS Safety Report 17516415 (Version 1)
Quarter: 2020Q1

REPORT INFORMATION
  Report Type: Spontaneous
  Country: US (occurrence: US)
  Receive Date: 20200309
  Receipt Date: 20200309
  Transmission Date: 20200409
  Serious: No
  Sender: FDA-Public Use
  Company Number: US-PFIZER INC-2020100368

PATIENT
  Sex: Female

DRUGS (2)
  1. CHANTIX [Suspect]
     Active Substance: VARENICLINE TARTRATE
     Dosage: UNK
     Dates: start: 2019, end: 2019
  2. CHANTIX [Suspect]
     Active Substance: VARENICLINE TARTRATE
     Dosage: UNK
     Dates: start: 2019

REACTIONS (6)
  - Influenza like illness [Unknown]
  - Walking disability [Unknown]
  - Oropharyngeal pain [Unknown]
  - Malaise [Unknown]
  - Oedema peripheral [Unknown]
  - Abdominal distension [Unknown]
